FAERS Safety Report 5343877-8 (Version None)
Quarter: 2007Q2

REPORT INFORMATION
  Report Type: 
  Country: None (occurrence: None)
  Receive Date: 20070531
  Receipt Date: 20070531
  Transmission Date: 20071010
  Serious: Yes (Other)
  Sender: FDA-Public Use
  Company Number: None

PATIENT
  Sex: Male
  Weight: 79.3795 kg

DRUGS (1)
  1. PENTASA [Suspect]
     Indication: COLITIS
     Dosage: 500MG 2X DAILY PO
     Route: 048
     Dates: start: 20070327, end: 20070413

REACTIONS (8)
  - ABDOMINAL PAIN [None]
  - DIARRHOEA [None]
  - HEPATIC ENZYME INCREASED [None]
  - MALAISE [None]
  - MIDDLE INSOMNIA [None]
  - NAUSEA [None]
  - PAIN [None]
  - PYREXIA [None]
